FAERS Safety Report 6121438-0 (Version None)
Quarter: 2009Q1

REPORT INFORMATION
  Report Type: 
  Country: None (occurrence: None)
  Receive Date: 20090317
  Receipt Date: 20090309
  Transmission Date: 20090719
  Serious: Yes (Other)
  Sender: FDA-Public Use
  Company Number: PHHY2009JP08931

PATIENT
  Age: 66 Year
  Sex: Female

DRUGS (2)
  1. ZOMETA [Suspect]
     Indication: BREAST CANCER
     Dosage: 10 MG DAILY
     Route: 042
     Dates: start: 20060101, end: 20090205
  2. BISPHONAL [Suspect]
     Indication: BREAST CANCER
     Dosage: 4 MG DAILY
     Route: 042
     Dates: start: 20050801, end: 20060101

REACTIONS (1)
  - OSTEOMYELITIS [None]
